FAERS Safety Report 5937578-2 (Version None)
Quarter: 2008Q4

REPORT INFORMATION
  Report Type: 
  Country: None (occurrence: None)
  Receive Date: 20081029
  Receipt Date: 20081017
  Transmission Date: 20090506
  Serious: Yes (Death, Other)
  Sender: FDA-Public Use
  Company Number: 230102M07GBR

PATIENT
  Age: 50 Year
  Sex: Female

DRUGS (6)
  1. REBIF [Suspect]
     Indication: MULTIPLE SCLEROSIS
     Dosage: 44 MCG, 3 IN 1 WEEKS, SUBCUTANEOUS
     Route: 058
     Dates: start: 20061122, end: 20071207
  2. DIAZEPAM [Concomitant]
  3. ACETAMINOPHEN [Concomitant]
  4. KILVONCE [KLIOVANCE] (CLIOGEST /00686201/) [Concomitant]
  5. DIHYDROCODEINE COMPOUND [Concomitant]
  6. PREGABALIN (PREGABALIN) [Concomitant]

REACTIONS (9)
  - AORTIC ARTERIOSCLEROSIS [None]
  - ARTERIOSCLEROSIS CORONARY ARTERY [None]
  - BLOOD PRESSURE INCREASED [None]
  - FALL [None]
  - HEPATIC CONGESTION [None]
  - LEFT VENTRICULAR HYPERTROPHY [None]
  - PULMONARY CONGESTION [None]
  - PULMONARY OEDEMA [None]
  - SUBARACHNOID HAEMORRHAGE [None]
